FAERS Safety Report 5864985-9 (Version None)
Quarter: 2008Q3

REPORT INFORMATION
  Report Type: 
  Country: None (occurrence: None)
  Receive Date: 20080829
  Receipt Date: 20080819
  Transmission Date: 20090109
  Serious: Yes (Hospitalization, Other)
  Sender: FDA-Public Use
  Company Number: US-BAXTER-2008BH008295

PATIENT
  Age: 36 Year
  Sex: Male
  Weight: 115 kg

DRUGS (16)
  1. GAMMAGARD LIQUID [Suspect]
     Indication: CHRONIC INFLAMMATORY DEMYELINATING POLYRADICULONEUROPATHY
     Route: 042
     Dates: start: 20080719, end: 20080720
  2. GAMMAGARD LIQUID [Suspect]
     Indication: OFF LABEL USE
     Route: 042
     Dates: start: 20080719, end: 20080720
  3. FLUVOXAMINE MALEATE [Concomitant]
     Indication: DRUG USE FOR UNKNOWN INDICATION
     Route: 048
  4. GABAPENTIN [Concomitant]
     Indication: DRUG USE FOR UNKNOWN INDICATION
     Route: 048
  5. PREDNISONE TAB [Concomitant]
     Indication: DRUG USE FOR UNKNOWN INDICATION
     Route: 048
  6. LOVENOX [Concomitant]
     Indication: DRUG USE FOR UNKNOWN INDICATION
     Route: 058
  7. VIGAMOX [Concomitant]
     Indication: DRUG USE FOR UNKNOWN INDICATION
     Route: 031
  8. COPPER [Concomitant]
     Indication: DRUG USE FOR UNKNOWN INDICATION
     Route: 048
  9. LORTAB [Concomitant]
     Indication: PAIN
     Route: 048
  10. 0.9% SODIUM CHLORIDE WITH POTASSIUM CHLORIDE [Concomitant]
     Indication: DRUG USE FOR UNKNOWN INDICATION
     Route: 042
  11. AMBIEN [Concomitant]
     Indication: INSOMNIA
     Route: 048
  12. MILK OF MAGNESIA [Concomitant]
     Indication: CONSTIPATION
     Route: 048
  13. COLACE [Concomitant]
     Indication: CONSTIPATION
     Route: 048
  14. DIPHENHYDRAMINE HCL [Concomitant]
     Indication: PRURITUS
     Route: 048
  15. LANSOPRAZOLE [Concomitant]
     Indication: DRUG USE FOR UNKNOWN INDICATION
     Route: 048
  16. SENNA [Concomitant]
     Indication: DRUG USE FOR UNKNOWN INDICATION
     Route: 048

REACTIONS (2)
  - MENINGITIS ASEPTIC [None]
  - RESPIRATORY DEPRESSION [None]
